FAERS Safety Report 22642337 (Version 3)
Quarter: 2025Q1

REPORT INFORMATION
  Report Type: Report from Study
  Country: US (occurrence: US)
  Receive Date: 20230626
  Receipt Date: 20250123
  Transmission Date: 20250409
  Serious: No
  Sender: TAKEDA
  Company Number: US-TAKEDA-2021TUS024366

PATIENT
  Sex: Male

DRUGS (14)
  1. PONATINIB [Suspect]
     Active Substance: PONATINIB
     Indication: Chronic myeloid leukaemia
     Dosage: 30 MILLIGRAM, QD
  2. PONATINIB [Suspect]
     Active Substance: PONATINIB
     Dosage: 15 MILLIGRAM, QD
  3. PONATINIB [Suspect]
     Active Substance: PONATINIB
     Dosage: 15 MILLIGRAM, QD
  4. PONATINIB [Suspect]
     Active Substance: PONATINIB
     Dosage: 15 MILLIGRAM, QD
  5. HYDROXYUREA [Concomitant]
     Active Substance: HYDROXYUREA
  6. ALLOPURINOL [Concomitant]
     Active Substance: ALLOPURINOL
  7. SPRYCEL [Concomitant]
     Active Substance: DASATINIB
  8. ZOFRAN [Concomitant]
     Active Substance: ONDANSETRON HYDROCHLORIDE
  9. PROVIGIL [Concomitant]
     Active Substance: MODAFINIL
  10. BELBUCA [Concomitant]
     Active Substance: BUPRENORPHINE HYDROCHLORIDE
  11. PERCOCET [Concomitant]
     Active Substance: ACETAMINOPHEN\OXYCODONE HYDROCHLORIDE
  12. METHADONE HYDROCHLORIDE [Concomitant]
     Active Substance: METHADONE HYDROCHLORIDE
  13. LISINOPRIL [Concomitant]
     Active Substance: LISINOPRIL
  14. OXYCODONE HYDROCHLORIDE [Concomitant]
     Active Substance: OXYCODONE HYDROCHLORIDE

REACTIONS (3)
  - Hypertension [Unknown]
  - Product use issue [Unknown]
  - Product dose omission issue [Unknown]
